FAERS Safety Report 9332575 (Version 2)
Quarter: 2013Q2

REPORT INFORMATION
  Report Type: Spontaneous
  Country: US (occurrence: US)
  Receive Date: 20130606
  Receipt Date: 20130611
  Transmission Date: 20140414
  Serious: Yes (Hospitalization)
  Sender: FDA-Public Use
  Company Number: US-GENZYME-RENA-1001802

PATIENT
  Age: 58 Year
  Sex: Male

DRUGS (2)
  1. RENVELA [Suspect]
     Indication: HYPERPHOSPHATAEMIA
     Dosage: UNK, 6 TABLETS PER MEAL AND 2-3 TABLETS WITH SNACKS
     Route: 065
  2. WHEY PROTEIN POWDER [Concomitant]
     Indication: PRODUCT USED FOR UNKNOWN INDICATION
     Dosage: UNK
     Route: 065

REACTIONS (3)
  - Complications of transplanted kidney [Not Recovered/Not Resolved]
  - Hyperphosphataemia [Unknown]
  - Overdose [Unknown]
